FAERS Safety Report 17427271 (Version 3)
Quarter: 2020Q1

REPORT INFORMATION
  Report Type: Spontaneous
  Country: US (occurrence: US)
  Receive Date: 20200217
  Receipt Date: 20200305
  Transmission Date: 20200409
  Serious: Yes (Other)
  Sender: FDA-Public Use
  Company Number: NVSC2020US041302

PATIENT
  Age: 70 Year
  Sex: Female

DRUGS (1)
  1. BEOVU [Suspect]
     Active Substance: BROLUCIZUMAB-DBLL
     Indication: NEOVASCULAR AGE-RELATED MACULAR DEGENERATION
     Dosage: 6 MG
     Route: 065
     Dates: start: 20200201

REACTIONS (3)
  - Vitreous floaters [Unknown]
  - Eye inflammation [Unknown]
  - Vitreous haze [Unknown]

NARRATIVE: CASE EVENT DATE: 20200201
